FAERS Safety Report 9868370 (Version 2)
Quarter: 2014Q1

REPORT INFORMATION
  Report Type: Spontaneous
  Country: US (occurrence: US)
  Receive Date: 20140204
  Receipt Date: 20140212
  Transmission Date: 20141002
  Serious: Yes (Hospitalization)
  Sender: FDA-Public Use
  Company Number: US-INCYTE CORPORATION-2014IN000247

PATIENT
  Sex: Male
  Weight: 66.67 kg

DRUGS (9)
  1. JAKAFI [Suspect]
     Indication: MYELOFIBROSIS
     Dosage: 10 MG, BID
     Route: 048
     Dates: start: 20130901
  2. JAKAFI [Suspect]
     Dosage: 10 MG, BID
     Route: 048
     Dates: start: 20131002, end: 2014
  3. PROTONIX [Concomitant]
  4. CYMBALTA [Concomitant]
  5. ZOLPIDEM [Concomitant]
  6. LORTAB                             /00607101/ [Concomitant]
  7. MIRAPEX [Concomitant]
  8. ROBAXIN [Concomitant]
  9. MULTIVITAMIN                       /00097801/ [Concomitant]

REACTIONS (1)
  - Bone marrow transplant [Unknown]
